FAERS Safety Report 17299420 (Version 1)
Quarter: 2020Q1

REPORT INFORMATION
  Report Type: Spontaneous
  Country: US (occurrence: US)
  Receive Date: 20200121
  Receipt Date: 20200121
  Transmission Date: 20200409
  Serious: Yes (Death)
  Sender: FDA-Public Use
  Company Number: None

PATIENT
  Age: 71 Year
  Sex: Female
  Weight: 86.18 kg

DRUGS (15)
  1. VALSARTAN 320MG [Concomitant]
     Active Substance: VALSARTAN
  2. INLYTA [Suspect]
     Active Substance: AXITINIB
     Indication: RENAL CANCER
     Route: 048
     Dates: start: 20191014, end: 20200121
  3. BREO ELLIPTA 100-25MCG [Concomitant]
  4. IPRATROPIUM BROMIDE 0.03% [Concomitant]
  5. LANTUS SOLOSTAR 100UNIT/ML [Concomitant]
  6. NOVOLOG FLEXPEN 100 UNIT/ML [Concomitant]
  7. CULTURELLE [Concomitant]
     Active Substance: LACTOBACILLUS RHAMNOSUS
  8. PROCHLORPERAZINE 10MG [Concomitant]
  9. PINDOLOL 5MG [Concomitant]
  10. COLACE 2-IN-1 8.6-50MG [Concomitant]
  11. AMLODIPINE [Concomitant]
     Active Substance: AMLODIPINE BESYLATE
  12. CHLORTHALIDONE 25MG [Concomitant]
     Active Substance: CHLORTHALIDONE
  13. ALLEGRA ALLERGY 60MG [Concomitant]
  14. FISH OIL BURP-LESS 1000MG [Concomitant]
  15. MULTIVITAMIN [Concomitant]
     Active Substance: VITAMINS

REACTIONS (1)
  - Death [None]

NARRATIVE: CASE EVENT DATE: 20200121
